FAERS Safety Report 7778282-8 (Version None)
Quarter: 2011Q3

REPORT INFORMATION
  Report Type: 
  Country: None (occurrence: None)
  Receive Date: 20110926
  Receipt Date: 20110918
  Transmission Date: 20111222
  Serious: Yes (Death, Other)
  Sender: FDA-Public Use
  Company Number: PHHY2011DE83135

PATIENT
  Sex: Male

DRUGS (5)
  1. FLUDARABINE PHOSPHATE [Concomitant]
     Dosage: UNK UKN, UNK
  2. MELPHALAN HYDROCHLORIDE [Concomitant]
     Dosage: UNK UKN, UNK
  3. ALEMTUZUMAB [Concomitant]
     Dosage: UNK UKN, UNK
  4. BIS-CHLORETHYL-NITROSO-UREA [Concomitant]
     Dosage: UNK UKN, UNK
  5. CYCLOSPORINE [Suspect]
     Indication: GRAFT VERSUS HOST DISEASE
     Dosage: UNK UKN, UNK

REACTIONS (8)
  - PLATELET COUNT DECREASED [None]
  - ADENOVIRUS INFECTION [None]
  - BRONCHOPULMONARY ASPERGILLOSIS [None]
  - CYTOMEGALOVIRUS INFECTION [None]
  - MULTI-ORGAN FAILURE [None]
  - ACUTE GRAFT VERSUS HOST DISEASE IN INTESTINE [None]
  - ENGRAFT FAILURE [None]
  - EPSTEIN-BARR VIRUS INFECTION [None]
